FAERS Safety Report 20569145 (Version 2)
Quarter: 2022Q3

REPORT INFORMATION
  Report Type: Spontaneous
  Country: US (occurrence: US)
  Receive Date: 20220308
  Receipt Date: 20220802
  Transmission Date: 20221026
  Serious: Yes (Other)
  Sender: FDA-Public Use
  Company Number: US-JNJFOC-20220301765

PATIENT
  Age: 7 Decade
  Sex: Female

DRUGS (8)
  1. ELMIRON [Suspect]
     Active Substance: PENTOSAN POLYSULFATE SODIUM
     Indication: Cystitis interstitial
     Dosage: PER DAY
     Route: 048
     Dates: start: 2006, end: 20160511
  2. ELMIRON [Suspect]
     Active Substance: PENTOSAN POLYSULFATE SODIUM
     Dosage: PER DAY
     Route: 048
     Dates: start: 201606, end: 2020
  3. LEXAPRO [Concomitant]
     Active Substance: ESCITALOPRAM OXALATE
     Dates: start: 20080604, end: 20180101
  4. DIOVAN [Concomitant]
     Active Substance: VALSARTAN
     Indication: Blood pressure measurement
     Dates: start: 20090122, end: 20160208
  5. LUNESTA [Concomitant]
     Active Substance: ESZOPICLONE
     Indication: Insomnia
     Dates: start: 2003, end: 20141226
  6. LUNESTA [Concomitant]
     Active Substance: ESZOPICLONE
     Indication: Sleep disorder therapy
  7. EVAMIST [Concomitant]
     Active Substance: ESTRADIOL
     Indication: Menopause
     Dates: start: 20100921, end: 20120106
  8. EVAMIST [Concomitant]
     Active Substance: ESTRADIOL
     Indication: Sleep disorder

REACTIONS (4)
  - Age-related macular degeneration [Not Recovered/Not Resolved]
  - Maculopathy [Unknown]
  - Blindness [Unknown]
  - Off label use [Unknown]

NARRATIVE: CASE EVENT DATE: 20060101
